FAERS Safety Report 14675803 (Version 4)
Quarter: 2018Q2

REPORT INFORMATION
  Report Type: Spontaneous
  Country: DE (occurrence: DE)
  Receive Date: 20180323
  Receipt Date: 20180423
  Transmission Date: 20180711
  Serious: Yes (Death, Hospitalization, Other)
  Sender: FDA-Public Use
  Company Number: DE-PFIZER INC-2018118481

PATIENT
  Age: 81 Year
  Sex: Female

DRUGS (4)
  1. IMATINIB [Suspect]
     Active Substance: IMATINIB
     Indication: GASTROINTESTINAL STROMAL TUMOUR
     Dosage: 400 MG/DAY AS 1ST LINE ADJUVANT THERAPY
     Route: 065
  2. SUNITINIB MALATE. [Suspect]
     Active Substance: SUNITINIB MALATE
     Indication: GASTROINTESTINAL STROMAL TUMOUR
     Dosage: UNK, 2ND LINE THERAPY
     Route: 065
  3. DIGOXIN. [Suspect]
     Active Substance: DIGOXIN
     Indication: ATRIAL FIBRILLATION
     Dosage: UNK
     Route: 065
  4. AMIODARONE HCL [Suspect]
     Active Substance: AMIODARONE HYDROCHLORIDE
     Indication: ATRIAL FIBRILLATION
     Dosage: UNK
     Route: 065

REACTIONS (11)
  - Neoplasm progression [Fatal]
  - Upper gastrointestinal haemorrhage [Fatal]
  - Haematuria [Unknown]
  - Oxygen saturation decreased [Unknown]
  - Bradycardia [Fatal]
  - Disease recurrence [Fatal]
  - Drug ineffective [Fatal]
  - Septic shock [Fatal]
  - Respiratory failure [Fatal]
  - Pyrexia [Unknown]
  - Shock [Fatal]
